FAERS Safety Report 12190128 (Version 4)
Quarter: 2016Q2

REPORT INFORMATION
  Report Type: Other
  Country: US (occurrence: US)
  Receive Date: 20160318
  Receipt Date: 20160422
  Transmission Date: 20160815
  Serious: Yes (Life-Threatening, Hospitalization, Other)
  Sender: FDA-Public Use
  Company Number: US-SHIRE-US201603122

PATIENT
  Age: 29 Year
  Sex: Female

DRUGS (3)
  1. FIRAZYR [Suspect]
     Active Substance: ICATIBANT ACETATE
     Indication: HEREDITARY ANGIOEDEMA
     Dosage: 30 MG, AS REQ^D
     Route: 058
     Dates: start: 20160229
  2. CINRYZE [Suspect]
     Active Substance: HUMAN C1-ESTERASE INHIBITOR
     Indication: PROPHYLAXIS
     Dosage: UNK, UNKNOWN
     Route: 042
     Dates: start: 2016
  3. CINRYZE [Suspect]
     Active Substance: HUMAN C1-ESTERASE INHIBITOR
     Indication: HEREDITARY ANGIOEDEMA
     Dosage: 1000 UNITS, OTHER (Q3D)
     Route: 042
     Dates: start: 2016

REACTIONS (3)
  - Laryngeal oedema [Unknown]
  - Pharyngeal oedema [Recovering/Resolving]
  - Hereditary angioedema [Recovering/Resolving]

NARRATIVE: CASE EVENT DATE: 20160311
